FAERS Safety Report 20785014 (Version 1)
Quarter: 2022Q2

REPORT INFORMATION
  Report Type: Spontaneous
  Country: US (occurrence: None)
  Receive Date: 20220503
  Receipt Date: 20220503
  Transmission Date: 20220721
  Serious: Yes (Death)
  Sender: FDA-Public Use
  Company Number: None

PATIENT
  Sex: Male

DRUGS (8)
  1. TREMFYA [Suspect]
     Active Substance: GUSELKUMAB
  2. ADVAIR DISU AER [Concomitant]
  3. CYCLOBENZAPR TAB [Concomitant]
  4. MELOXICAM TAB [Concomitant]
  5. PAROXETINE [Concomitant]
  6. PERCOCET TAB [Concomitant]
  7. PROAIR HFA [Concomitant]
  8. THEOPHYLLINE TAB [Concomitant]

REACTIONS (1)
  - Death [None]
